FAERS Safety Report 9376107 (Version 4)
Quarter: 2014Q2

REPORT INFORMATION
  Report Type: Report from Study
  Country: US (occurrence: US)
  Receive Date: 20130701
  Receipt Date: 20140604
  Transmission Date: 20141212
  Serious: Yes (Congenital Anomaly, Other)
  Sender: FDA-Public Use
  Company Number: GXBR2013US001294

PATIENT
  Age: 0 Day
  Sex: Female
  Weight: 11.51 kg

DRUGS (2)
  1. RIBAVIRIN CAPSULES [Suspect]
     Dosage: MATERNAL DOSE: UNKNOWN
     Route: 064
  2. PEGINTERFERON ALFA [Suspect]
     Dosage: MATERNAL DOSE: UNKNOWN
     Route: 064

REACTIONS (5)
  - Atrial septal defect [Recovered/Resolved]
  - Collateral circulation [Unknown]
  - Jaundice neonatal [Recovered/Resolved]
  - Protrusion tongue [Not Recovered/Not Resolved]
  - Foetal exposure during pregnancy [Recovered/Resolved]
